FAERS Safety Report 16460269 (Version 1)
Quarter: 2019Q2

REPORT INFORMATION
  Report Type: Spontaneous
  Country: US (occurrence: US)
  Receive Date: 20190620
  Receipt Date: 20190620
  Transmission Date: 20190711
  Serious: Yes (Other)
  Sender: FDA-Public Use
  Company Number: US-ELITE LABORATORIES INC.-2019ELT00023

PATIENT
  Age: 54 Year
  Sex: Male
  Weight: 88.44 kg

DRUGS (10)
  1. METHADONE HYDROCHLORIDE. [Suspect]
     Active Substance: METHADONE HYDROCHLORIDE
     Indication: TRIGEMINAL NEURALGIA
  2. ZOFRAN [Concomitant]
     Active Substance: ONDANSETRON HYDROCHLORIDE
     Dosage: 8 MG, UP TO 2X/DAY
     Route: 060
  3. METHADONE HYDROCHLORIDE. [Suspect]
     Active Substance: METHADONE HYDROCHLORIDE
     Indication: PAIN
     Dosage: 20 MG, 4X/DAY
     Route: 048
     Dates: start: 20190401, end: 20190601
  4. KAPIVA OIL [Concomitant]
  5. METHADONE HYDROCHLORIDE. [Suspect]
     Active Substance: METHADONE HYDROCHLORIDE
     Indication: INTERCOSTAL NEURALGIA
  6. PREDNISONE. [Concomitant]
     Active Substance: PREDNISONE
     Dosage: 10 MG, UP TO 2X/DAY
     Route: 048
  7. METHADONE HYDROCHLORIDE. [Suspect]
     Active Substance: METHADONE HYDROCHLORIDE
     Indication: RHEUMATOID ARTHRITIS
  8. ZYPREXA [Concomitant]
     Active Substance: OLANZAPINE
     Dosage: 5 MG, 1X/DAY, AT BEDTIME
     Route: 048
     Dates: start: 2009
  9. CLONIDINE. [Concomitant]
     Active Substance: CLONIDINE
     Dosage: 0.1 MG, 2X/DAY
     Route: 048
     Dates: start: 201902
  10. AMPHETAMINE D SALT [Concomitant]
     Dosage: 10 MG, 2X/DAY
     Route: 048

REACTIONS (10)
  - Arthralgia [Recovered/Resolved]
  - Product administration error [Recovered/Resolved]
  - Withdrawal syndrome [Recovered/Resolved]
  - Hypertension [Recovered/Resolved]
  - Pain [Recovered/Resolved]
  - Choking [Recovered/Resolved]
  - Retching [Recovered/Resolved]
  - Hypoaesthesia oral [Recovered/Resolved]
  - Therapeutic product effect decreased [Recovered/Resolved]
  - Off label use [Recovered/Resolved]

NARRATIVE: CASE EVENT DATE: 201904
